FAERS Safety Report 10648934 (Version 2)
Quarter: 2015Q1

REPORT INFORMATION
  Report Type: Report from Study
  Country: US (occurrence: US)
  Receive Date: 20141212
  Receipt Date: 20150123
  Transmission Date: 20150720
  Serious: Yes (Hospitalization)
  Sender: FDA-Public Use
  Company Number: US-ACTELION-A-NJ2014-109498

PATIENT
  Age: 67 Year
  Sex: Female

DRUGS (16)
  1. FUROSEMIDE. [Concomitant]
     Active Substance: FUROSEMIDE
     Dosage: 80 MG, QD
     Dates: start: 2014
  2. AMIODARONE [Concomitant]
     Active Substance: AMIODARONE
     Dosage: 200 MG, BID
     Dates: start: 2012
  3. MULTIVITAMIN [Concomitant]
     Active Substance: VITAMINS
  4. ATENOLOL. [Concomitant]
     Active Substance: ATENOLOL
     Dosage: 100 MG, QD
     Dates: start: 1983
  5. XANAX [Concomitant]
     Active Substance: ALPRAZOLAM
     Dosage: 0.125 MG, UNK
     Dates: start: 2010
  6. MACITENTAN [Suspect]
     Active Substance: MACITENTAN
     Indication: PULMONARY ARTERIAL HYPERTENSION
     Dosage: 10 MG, QD
     Route: 048
     Dates: start: 20141114
  7. PRIMADOPHILUS BIFIDUS [Concomitant]
  8. CHROMIUM [Concomitant]
     Active Substance: CHROMIC CHLORIDE\CHROMIUM
  9. IPRIFLAVONE [Concomitant]
     Active Substance: IPRIFLAVONE
  10. ARMOUR THYROID [Concomitant]
     Active Substance: THYROID, PORCINE\THYROID, UNSPECIFIED
     Dosage: 45 MG, QD
  11. MSM [Concomitant]
     Active Substance: DIMETHYL SULFONE
     Dosage: 1500 MG, QID
  12. FISH OIL [Concomitant]
     Active Substance: FISH OIL
  13. PROGESTERONE. [Concomitant]
     Active Substance: PROGESTERONE
  14. CALCIUM [Concomitant]
     Active Substance: CALCIUM
     Dosage: 500 MG, QD
     Dates: start: 1995
  15. PRADAXA [Concomitant]
     Active Substance: DABIGATRAN ETEXILATE MESYLATE
     Dosage: 150 MG, BID
     Dates: start: 2012
  16. KYO-DOPHILUS [Concomitant]

REACTIONS (2)
  - Atrial fibrillation [Recovered/Resolved]
  - Cardioversion [Recovered/Resolved]
